FAERS Safety Report 4336404-5 (Version None)
Quarter: 2004Q2

REPORT INFORMATION
  Report Type: 
  Country: None (occurrence: None)
  Receive Date: 20040407
  Receipt Date: 20040325
  Transmission Date: 20050107
  Serious: Yes (Hospitalization, Other)
  Sender: FDA-Public Use
  Company Number: 2004015650

PATIENT
  Age: 78 Year
  Sex: Female
  Weight: 66.2252 kg

DRUGS (8)
  1. LIPITOR [Suspect]
     Indication: HYPERLIPIDAEMIA
     Dosage: 10 MG (DAILY)
     Dates: start: 20030201, end: 20030301
  2. HMG COA REDUCTASE INHIBITORS (HMG COA REDUCTASE INHIBITORS) [Suspect]
     Indication: HYPERLIPIDAEMIA
     Dates: start: 20030301
  3. SERUMLIPIDREDUCING AGENTS (SERUMLIPIDREDUCING AGENTS) [Suspect]
     Indication: ILL-DEFINED DISORDER
     Dates: start: 20030301, end: 20030301
  4. SIMVASTATIN [Suspect]
     Indication: HYPERLIPIDAEMIA
  5. FLUVASTATIN (FLUVASTATIN) [Suspect]
     Indication: HYPERLIPIDAEMIA
  6. LEVOTHYROXINE SODIUM [Concomitant]
  7. ACETYLSALICYLIC ACID SRT [Concomitant]
  8. ESOMEPRAZOLE (ESOMEPRAZOLE) [Concomitant]

REACTIONS (7)
  - BACK PAIN [None]
  - BLOOD CHOLESTEROL INCREASED [None]
  - MUSCLE CRAMP [None]
  - MYALGIA [None]
  - PAIN [None]
  - PAIN IN EXTREMITY [None]
  - TRANSIENT ISCHAEMIC ATTACK [None]
